FAERS Safety Report 17105787 (Version 1)
Quarter: 2019Q4

REPORT INFORMATION
  Report Type: Spontaneous
  Country: FR (occurrence: FR)
  Receive Date: 20191203
  Receipt Date: 20191203
  Transmission Date: 20200122
  Serious: Yes (Hospitalization, Other)
  Sender: FDA-Public Use
  Company Number: FR-PFIZER INC-2019515440

PATIENT
  Age: 88 Year
  Sex: Female
  Weight: 80 kg

DRUGS (9)
  1. FUROSEMIDE. [Concomitant]
     Active Substance: FUROSEMIDE
     Dosage: 40 MG, 1X/DAY
     Route: 048
  2. CALCIDOSE [CALCIUM CARBONATE] [Concomitant]
     Active Substance: CALCIUM CARBONATE
     Dosage: 1 MORNING AND EVENING
     Route: 048
  3. BISOCE [Concomitant]
     Active Substance: BISOPROLOL
     Dosage: 5 MG, 1X/DAY
     Route: 048
  4. MACROGOL 4000 [Concomitant]
     Active Substance: POLYETHYLENE GLYCOL 4000
     Dosage: 1 DF, 1X/DAY
     Route: 048
  5. DOLIPRANE [Concomitant]
     Active Substance: ACETAMINOPHEN
     Dosage: 3 G, DAILY
     Route: 048
  6. TRAMADOL. [Concomitant]
     Active Substance: TRAMADOL
     Dosage: 50 MG, AS NEEDED
     Route: 048
  7. DALACINE [Suspect]
     Active Substance: CLINDAMYCIN
     Indication: DERMO-HYPODERMITIS
     Dosage: 2 TABLETS, 3X/DAY
     Route: 048
     Dates: start: 20190927, end: 20190930
  8. CORDARONE X [Concomitant]
     Active Substance: AMIODARONE HYDROCHLORIDE
     Dosage: 1 TABLET ON MONDAYS, TUESDAYS, WEDNESDAYS, THURSDAYS AND FRIDAYS
     Route: 048
  9. COUMADINE [Concomitant]
     Active Substance: WARFARIN SODIUM
     Dosage: 0.5 TABLET 1 DAY OF 2
     Route: 048

REACTIONS (2)
  - Cholestasis [Recovered/Resolved]
  - Rash maculo-papular [Recovered/Resolved]

NARRATIVE: CASE EVENT DATE: 20190930
